FAERS Safety Report 15714382 (Version 1)
Quarter: 2018Q4

REPORT INFORMATION
  Report Type: Spontaneous
  Country: US (occurrence: US)
  Receive Date: 20181129
  Receipt Date: 20181129
  Transmission Date: 20190205
  Serious: No
  Sender: FDA-Public Use
  Company Number: None

PATIENT
  Sex: Female

DRUGS (1)
  1. BOTOX [Suspect]
     Active Substance: ONABOTULINUMTOXINA
     Indication: MIGRAINE
     Dosage: ?          OTHER DOSE:200U/IV;OTHER FREQUENCY:EVERY 12 WEEKS;?
     Route: 030
     Dates: start: 20180827

REACTIONS (2)
  - Skin tightness [None]
  - Swelling face [None]
